FAERS Safety Report 5230835-7 (Version None)
Quarter: 2007Q1

REPORT INFORMATION
  Report Type: 
  Country: None (occurrence: None)
  Receive Date: 20070202
  Receipt Date: 20070123
  Transmission Date: 20070707
  Serious: No
  Sender: FDA-Public Use
  Company Number: 2007-153461-NL

PATIENT
  Age: 33 Year
  Sex: Male

DRUGS (1)
  1. MIRTAZAPINE [Suspect]

REACTIONS (2)
  - ALANINE AMINOTRANSFERASE INCREASED [None]
  - JAUNDICE [None]
